FAERS Safety Report 8400402-2 (Version None)
Quarter: 2012Q2

REPORT INFORMATION
  Report Type: 
  Country: None (occurrence: None)
  Receive Date: 20120531
  Receipt Date: 20120521
  Transmission Date: 20120825
  Serious: Yes (Hospitalization)
  Sender: FDA-Public Use
  Company Number: DE-ABBOTT-12P-062-0895896-01

PATIENT
  Sex: Female

DRUGS (7)
  1. HUMIRA [Suspect]
     Dosage: WEEK 2
     Route: 058
  2. 5-ASA/MESALAMINE [Concomitant]
     Indication: PRODUCT USED FOR UNKNOWN INDICATION
  3. METHOTREXATE [Concomitant]
     Indication: CROHN'S DISEASE
     Dates: start: 20090804
  4. HUMIRA [Suspect]
     Route: 058
     Dates: start: 20090804, end: 20091117
  5. PANTOPRAZOLE SODIUM [Concomitant]
     Indication: GASTRITIS EROSIVE
  6. HUMIRA [Suspect]
     Indication: CROHN'S DISEASE
     Route: 058
     Dates: start: 20090130, end: 20090130
  7. HUMIRA [Suspect]
     Dosage: BASELINE
     Route: 058

REACTIONS (1)
  - ILEAL STENOSIS [None]
